FAERS Safety Report 8233969-8 (Version None)
Quarter: 2012Q1

REPORT INFORMATION
  Report Type: 
  Country: None (occurrence: None)
  Receive Date: 20120323
  Receipt Date: 20120323
  Transmission Date: 20120608
  Serious: Yes (Hospitalization)
  Sender: FDA-Public Use
  Company Number: None

PATIENT
  Sex: Male
  Weight: 80.7 kg

DRUGS (4)
  1. NYSTATIN [Concomitant]
  2. METHYLPREDNISOLONE [Concomitant]
  3. ERBITUX [Suspect]
     Dosage: 500 MG
  4. ALBUTEROL [Concomitant]

REACTIONS (3)
  - PNEUMONITIS [None]
  - LYMPHADENOPATHY [None]
  - PRODUCTIVE COUGH [None]
